FAERS Safety Report 23224539 (Version 1)
Quarter: 2023Q4

REPORT INFORMATION
  Report Type: Spontaneous
  Country: US (occurrence: US)
  Receive Date: 20231124
  Receipt Date: 20231124
  Transmission Date: 20240109
  Serious: No
  Sender: FDA-Public Use
  Company Number: US-TAKEDA-2023TUS113669

PATIENT
  Sex: Male
  Weight: 86 kg

DRUGS (1)
  1. LIVTENCITY [Suspect]
     Active Substance: MARIBAVIR
     Indication: Chronic kidney disease
     Dosage: 400 MILLIGRAM, BID
     Route: 065
     Dates: start: 20230801

REACTIONS (1)
  - Dysgeusia [Unknown]
